FAERS Safety Report 20233874 (Version 1)
Quarter: 2021Q4

REPORT INFORMATION
  Report Type: Spontaneous
  Country: MA (occurrence: MA)
  Receive Date: 20211227
  Receipt Date: 20211227
  Transmission Date: 20220303
  Serious: Yes (Other)
  Sender: FDA-Public Use
  Company Number: MA-BRISTOL-MYERS SQUIBB COMPANY-BMS-2021-138881

PATIENT
  Age: 74 Year
  Sex: Male

DRUGS (2)
  1. HYDROXYUREA [Suspect]
     Active Substance: HYDROXYUREA
     Indication: Hypereosinophilic syndrome
     Dosage: 1 GRAM, QD
     Route: 065
  2. INTERFERON ALFA-1A [Suspect]
     Active Substance: INTERFERON ALFA-1A
     Indication: Hypereosinophilic syndrome
     Dosage: 3 X 3 MIU WEEKLY
     Route: 065

REACTIONS (5)
  - Sepsis [Unknown]
  - Asthenia [Unknown]
  - Decreased appetite [Unknown]
  - Superinfection [Unknown]
  - Intentional product use issue [Unknown]
